FAERS Safety Report 7156483-X (Version None)
Quarter: 2010Q4

REPORT INFORMATION
  Report Type: 
  Country: None (occurrence: None)
  Receive Date: 20101214
  Receipt Date: 20091111
  Transmission Date: 20110411
  Serious: No
  Sender: FDA-Public Use
  Company Number: US-ASTRAZENECA-2009SE26026

PATIENT
  Age: 81 Year
  Sex: Female
  Weight: 53.1 kg

DRUGS (7)
  1. CRESTOR [Suspect]
     Route: 048
     Dates: start: 20090301, end: 20090301
  2. CRESTOR [Suspect]
     Route: 048
     Dates: start: 20091106
  3. EVISTOR [Concomitant]
     Route: 048
  4. MULTI-VITAMIN [Concomitant]
     Route: 048
  5. OMEGA FISH OIL [Concomitant]
     Route: 048
  6. CITRACAL W/VITAMIN D [Concomitant]
     Route: 048
  7. ASPIRIN [Concomitant]
     Route: 048

REACTIONS (4)
  - ABDOMINAL PAIN UPPER [None]
  - HIGH DENSITY LIPOPROTEIN INCREASED [None]
  - INSOMNIA [None]
  - MUSCULOSKELETAL PAIN [None]
